FAERS Safety Report 5542422-1 (Version None)
Quarter: 2007Q4

REPORT INFORMATION
  Report Type: 
  Country: None (occurrence: None)
  Receive Date: 20071129
  Receipt Date: 20070601
  Transmission Date: 20080405
  Serious: Yes (Other)
  Sender: FDA-Public Use
  Company Number: US200706000158

PATIENT
  Age: 41 Year
  Sex: Male

DRUGS (3)
  1. OLANZAPINE [Suspect]
     Indication: ANOREXIA
     Dosage: 20 MG, EACH EVENING, ORAL : 30 MG, ORAL
     Route: 048
  2. VICODIN [Concomitant]
  3. WELLBUTRIN [Concomitant]

REACTIONS (8)
  - ASTHENIA [None]
  - DIZZINESS [None]
  - DRY MOUTH [None]
  - INCREASED APPETITE [None]
  - LOSS OF CONSCIOUSNESS [None]
  - OVERDOSE [None]
  - SOMNOLENCE [None]
  - WEIGHT INCREASED [None]
